FAERS Safety Report 10755228 (Version 1)
Quarter: 2015Q1

REPORT INFORMATION
  Report Type: Spontaneous
  Country: US (occurrence: None)
  Receive Date: 20150123
  Receipt Date: 20150123
  Transmission Date: 20150721
  Serious: Yes (Hospitalization)
  Sender: FDA-Public Use
  Company Number: TPA2011A02025

PATIENT
  Age: 3 Year
  Sex: Male
  Weight: 31 kg

DRUGS (2)
  1. PREVACID SOLUTAB [Suspect]
     Active Substance: LANSOPRAZOLE
     Indication: GASTROOESOPHAGEAL REFLUX DISEASE
     Dates: start: 20110406, end: 20110423
  2. PREVACID 24 HR [Suspect]
     Active Substance: LANSOPRAZOLE
     Dates: start: 20110425, end: 20110425

REACTIONS (1)
  - Stevens-Johnson syndrome [None]

NARRATIVE: CASE EVENT DATE: 20110426
